FAERS Safety Report 10426357 (Version 2)
Quarter: 2014Q3

REPORT INFORMATION
  Report Type: Spontaneous
  Country: US (occurrence: US)
  Receive Date: 20140903
  Receipt Date: 20140909
  Transmission Date: 20150326
  Serious: Yes (Other)
  Sender: FDA-Public Use
  Company Number: US-JNJFOC-20140824878

PATIENT
  Sex: Female

DRUGS (1)
  1. SIMPONI [Suspect]
     Active Substance: GOLIMUMAB
     Indication: RHEUMATOID ARTHRITIS
     Dosage: PFS
     Route: 058

REACTIONS (4)
  - Hiatus hernia [Unknown]
  - Meniscus injury [Unknown]
  - Haemorrhage [Unknown]
  - Aspiration [Unknown]
